FAERS Safety Report 15218494 (Version 2)
Quarter: 2018Q3

REPORT INFORMATION
  Report Type: Spontaneous
  Country: KR (occurrence: KR)
  Receive Date: 20180730
  Receipt Date: 20180807
  Transmission Date: 20181010
  Serious: Yes (Other)
  Sender: FDA-Public Use
  Company Number: KR-009507513-1807KOR011407

PATIENT
  Sex: Female

DRUGS (23)
  1. SODIUM CHLORIDE. [Concomitant]
     Active Substance: SODIUM CHLORIDE
     Dosage: 4 UNK, UNK
     Dates: start: 20180526, end: 20180531
  2. MAGNESIN (MAGNESIUM SULFATE) [Concomitant]
     Dosage: UNK
     Dates: start: 20180517, end: 20180703
  3. HYDROMORPHONE [Concomitant]
     Active Substance: HYDROMORPHONE
     Dosage: UNK
     Dates: start: 20180521, end: 20180531
  4. KEROMIN [Concomitant]
     Dosage: UNK
     Dates: start: 20180517, end: 20180609
  5. HYDROMORPHONE [Concomitant]
     Active Substance: HYDROMORPHONE
     Dosage: UNK
     Dates: start: 20180520, end: 20180527
  6. TAZOPERAN [Concomitant]
     Dosage: UNK
     Dates: start: 20180517, end: 20180602
  7. SODIUM CHLORIDE. [Concomitant]
     Active Substance: SODIUM CHLORIDE
     Dosage: 3 UNK, UNK
     Dates: start: 20180518, end: 20180621
  8. DEXTROSE. [Concomitant]
     Active Substance: DEXTROSE
     Dosage: UNK
     Dates: start: 20180518, end: 20180603
  9. TAZOPERAN [Concomitant]
     Dosage: UNK
     Dates: start: 20180518, end: 20180524
  10. ZYVOX [Concomitant]
     Active Substance: LINEZOLID
     Dosage: UNK
     Dates: start: 20180522, end: 20180612
  11. FURTMAN [Concomitant]
     Dosage: UNK
     Dates: start: 20180525, end: 20180703
  12. DEXAMETHASONE. [Concomitant]
     Active Substance: DEXAMETHASONE
     Dosage: UNK
     Dates: start: 20180529, end: 20180704
  13. MORPHINE [Concomitant]
     Active Substance: MORPHINE
     Dosage: 10 UNK, UNK
     Dates: start: 20180531, end: 20180531
  14. TAMIPOOL [Concomitant]
     Active Substance: VITAMINS
     Dosage: UNK
     Dates: start: 20180525, end: 20180702
  15. CORTISOLU [Concomitant]
     Active Substance: HYDROCORTISONE SODIUM SUCCINATE
     Dosage: UNK
     Dates: start: 20180529, end: 20180619
  16. SODIUM CHLORIDE. [Concomitant]
     Active Substance: SODIUM CHLORIDE
     Dosage: UNK
     Dates: start: 20180517, end: 20180701
  17. HYDROMORPHONE [Concomitant]
     Active Substance: HYDROMORPHONE
     Dosage: UNK
     Dates: start: 20180522, end: 20180530
  18. CHLORPHENIRAMINE MALEATE. [Concomitant]
     Active Substance: CHLORPHENIRAMINE MALEATE
     Dosage: UNK
     Dates: start: 20180529, end: 20180704
  19. KEYTRUDA [Suspect]
     Active Substance: PEMBROLIZUMAB
     Indication: CERVIX CARCINOMA
     Dosage: UNK
     Dates: start: 20180524
  20. SODIUM CHLORIDE. [Concomitant]
     Active Substance: SODIUM CHLORIDE
     Dosage: 8 UNK, UNK
     Dates: start: 20180524, end: 20180531
  21. SODIUM CHLORIDE. [Concomitant]
     Active Substance: SODIUM CHLORIDE
     Dosage: 5 UNK, UNK
     Dates: start: 20180524, end: 20180601
  22. ZYVOX [Concomitant]
     Active Substance: LINEZOLID
     Dosage: UNK
     Dates: start: 20180523, end: 20180618
  23. DENOGAN [Concomitant]
     Active Substance: PROPACETAMOL HYDROCHLORIDE
     Dosage: UNK
     Dates: start: 20180524, end: 20180630

REACTIONS (2)
  - Vaginal haemorrhage [Unknown]
  - Product use in unapproved indication [Unknown]

NARRATIVE: CASE EVENT DATE: 2018
